FAERS Safety Report 7352123-5 (Version None)
Quarter: 2011Q1

REPORT INFORMATION
  Report Type: 
  Country: None (occurrence: None)
  Receive Date: 20110315
  Receipt Date: 20110307
  Transmission Date: 20110831
  Serious: Yes (Hospitalization)
  Sender: FDA-Public Use
  Company Number: US-TYCO HEALTHCARE/MALLINCKRODT-T201100548

PATIENT
  Age: 60 Year
  Sex: Female

DRUGS (1)
  1. CONRAY 43 [Suspect]
     Indication: SPINAL MYELOGRAM
     Dosage: 15 ML, SINGLE
     Route: 037
     Dates: start: 20110307, end: 20110307

REACTIONS (5)
  - INCORRECT ROUTE OF DRUG ADMINISTRATION [None]
  - NAUSEA [None]
  - WRONG DRUG ADMINISTERED [None]
  - HEADACHE [None]
  - PAIN [None]
